FAERS Safety Report 4335708-X (Version None)
Quarter: 2004Q2

REPORT INFORMATION
  Report Type: 
  Country: None (occurrence: None)
  Receive Date: 20040409
  Receipt Date: 20040330
  Transmission Date: 20050107
  Serious: Yes (Hospitalization)
  Sender: FDA-Public Use
  Company Number: ES-GLAXOSMITHKLINE-B0328825A

PATIENT
  Sex: Male

DRUGS (2)
  1. ZYNTABAC [Suspect]
     Indication: EX-SMOKER
     Route: 048
  2. UNSPECIFIED ANTI-DIABETIC [Concomitant]
     Indication: DIABETES MELLITUS

REACTIONS (1)
  - DIABETIC NEUROPATHY [None]
